FAERS Safety Report 17967280 (Version 6)
Quarter: 2020Q4

REPORT INFORMATION
  Report Type: Report from Study
  Country: AU (occurrence: AU)
  Receive Date: 20200701
  Receipt Date: 20201028
  Transmission Date: 20210113
  Serious: Yes (Other)
  Sender: FDA-Public Use
  Company Number: NVSC2020AU179755

PATIENT
  Age: 57 Year
  Sex: Female
  Weight: 56 kg

DRUGS (23)
  1. ETOPOSIDE. [Concomitant]
     Active Substance: ETOPOSIDE
     Indication: CHEMOTHERAPY
     Dosage: UNK
     Route: 065
     Dates: start: 20150209, end: 20160204
  2. CYTARABINE. [Concomitant]
     Active Substance: CYTARABINE
     Indication: CHEMOTHERAPY
     Dosage: UNK
     Route: 065
     Dates: start: 20150209, end: 20160204
  3. VINCRISTINE [Concomitant]
     Active Substance: VINCRISTINE
     Indication: CHEMOTHERAPY
     Dosage: UNK
     Route: 065
     Dates: start: 20130523, end: 201309
  4. VINCRISTINE [Concomitant]
     Active Substance: VINCRISTINE
     Dosage: UNK
     Route: 065
     Dates: start: 20190620
  5. CARMUSTINE. [Concomitant]
     Active Substance: CARMUSTINE
     Indication: CHEMOTHERAPY
     Dosage: UNK
     Route: 065
     Dates: start: 20150209, end: 20160204
  6. TISAGENLECLEUCEL. [Suspect]
     Active Substance: TISAGENLECLEUCEL
     Indication: LYMPHOMA
     Dosage: 2.6X10E8 CELLS, ONCE/SINGLE
     Route: 042
     Dates: start: 20190724
  7. ETOPOSIDE. [Concomitant]
     Active Substance: ETOPOSIDE
     Dosage: UNK
     Route: 065
     Dates: start: 20150825, end: 20151106
  8. RITUXIMAB. [Concomitant]
     Active Substance: RITUXIMAB
     Dosage: UNK
     Route: 065
     Dates: start: 20190625
  9. CALCIUM CARBONATE. [Concomitant]
     Active Substance: CALCIUM CARBONATE
     Indication: GENERAL PHYSICAL CONDITION
     Dosage: UNK
     Route: 065
     Dates: start: 20190913
  10. CYCLOPHOSPHAMIDE. [Suspect]
     Active Substance: CYCLOPHOSPHAMIDE
     Indication: CHEMOTHERAPY
     Dosage: UNK
     Route: 065
     Dates: start: 20130523, end: 201309
  11. CARBOPLATIN. [Concomitant]
     Active Substance: CARBOPLATIN
     Indication: CHEMOTHERAPY
     Dosage: UNK
     Route: 065
     Dates: start: 20150825, end: 20151106
  12. ENDONE [Concomitant]
     Active Substance: OXYCODONE HYDROCHLORIDE
     Indication: SQUAMOUS CELL CARCINOMA
     Dosage: UNK
     Route: 065
     Dates: start: 20200611, end: 20200613
  13. RITUXIMAB. [Concomitant]
     Active Substance: RITUXIMAB
     Indication: CHEMOTHERAPY
     Dosage: UNK
     Route: 065
     Dates: start: 20130523, end: 201309
  14. RITUXIMAB. [Concomitant]
     Active Substance: RITUXIMAB
     Dosage: UNK
     Route: 065
     Dates: start: 20150825, end: 20151106
  15. FLUDARABINE PHOSPHATE. [Suspect]
     Active Substance: FLUDARABINE PHOSPHATE
     Indication: CHEMOTHERAPY
     Dosage: UNK
     Route: 065
     Dates: start: 20190718, end: 20190720
  16. CYCLOPHOSPHAMIDE. [Suspect]
     Active Substance: CYCLOPHOSPHAMIDE
     Dosage: UNK
     Route: 065
     Dates: start: 20190718, end: 20190720
  17. DEXAMETHASONE. [Concomitant]
     Active Substance: DEXAMETHASONE
     Indication: CHEMOTHERAPY
     Dosage: UNK
     Route: 065
     Dates: start: 20190620, end: 20190623
  18. DOXORUBICIN [Concomitant]
     Active Substance: DOXORUBICIN
     Indication: CHEMOTHERAPY
     Dosage: UNK
     Route: 065
     Dates: start: 20130523, end: 201309
  19. IFOSFAMIDE. [Concomitant]
     Active Substance: IFOSFAMIDE
     Indication: CHEMOTHERAPY
     Dosage: UNK
     Route: 065
     Dates: start: 20150825, end: 20151106
  20. MELPHALAN. [Concomitant]
     Active Substance: MELPHALAN
     Indication: CHEMOTHERAPY
     Dosage: UNK
     Route: 065
     Dates: start: 20150209, end: 20160204
  21. PENTAMIDINE [Concomitant]
     Active Substance: PENTAMIDINE
     Indication: GENERAL PHYSICAL CONDITION
     Dosage: UNK
     Route: 065
     Dates: start: 20190723
  22. NUROFEN [Concomitant]
     Active Substance: IBUPROFEN
     Indication: SQUAMOUS CELL CARCINOMA
     Dosage: UNK
     Route: 065
     Dates: start: 20200611, end: 20200615
  23. PARACETAMOL [Concomitant]
     Active Substance: ACETAMINOPHEN
     Indication: SQUAMOUS CELL CARCINOMA
     Dosage: UNK
     Route: 065
     Dates: start: 20200611, end: 20200616

REACTIONS (2)
  - Malignant melanoma [Recovered/Resolved]
  - Second primary malignancy [Recovered/Resolved]

NARRATIVE: CASE EVENT DATE: 20200611
